FAERS Safety Report 5016529-1 (Version None)
Quarter: 2006Q2

REPORT INFORMATION
  Report Type: 
  Country: None (occurrence: None)
  Receive Date: 20060602
  Receipt Date: 20060518
  Transmission Date: 20061013
  Serious: Yes (Other)
  Sender: FDA-Public Use
  Company Number: PHEH2006US06537

PATIENT
  Age: 74 Year
  Sex: Female
  Weight: 78.004 kg

DRUGS (2)
  1. DIOVAN [Suspect]
     Indication: HYPERTENSION
     Dosage: 320 MG, QD
     Route: 048
  2. DIOVAN [Suspect]
     Dosage: UNK MG, UNK
     Route: 048

REACTIONS (6)
  - ANGER [None]
  - DIARRHOEA [None]
  - GASTROENTERITIS VIRAL [None]
  - HYPERTENSION [None]
  - NAUSEA [None]
  - VOMITING [None]
